FAERS Safety Report 9803602 (Version 1)
Quarter: 2014Q1

REPORT INFORMATION
  Report Type: Spontaneous
  Country: US (occurrence: US)
  Receive Date: 20140108
  Receipt Date: 20140108
  Transmission Date: 20141002
  Serious: No
  Sender: FDA-Public Use
  Company Number: US-GLAXOSMITHKLINE-A1011688A

PATIENT
  Age: 71 Year
  Sex: Male

DRUGS (6)
  1. LOVAZA [Suspect]
     Dosage: 2G TWICE PER DAY
     Route: 048
     Dates: start: 20120418
  2. LISINOPRIL [Concomitant]
  3. AMLODIPINE [Concomitant]
  4. PRILOSEC [Concomitant]
  5. PRADAXA [Concomitant]
  6. AMITRIPTYLINE [Concomitant]

REACTIONS (3)
  - Nausea [Unknown]
  - Product odour abnormal [Unknown]
  - Product quality issue [Unknown]
